FAERS Safety Report 6186862-9 (Version None)
Quarter: 2009Q2

REPORT INFORMATION
  Report Type: 
  Country: None (occurrence: None)
  Receive Date: 20090512
  Receipt Date: 20090504
  Transmission Date: 20091009
  Serious: Yes (Other)
  Sender: FDA-Public Use
  Company Number: BR-AVENTIS-200914007GDDC

PATIENT
  Age: 18 Year
  Sex: Female

DRUGS (2)
  1. ALLEGRA-D 12 HOUR [Suspect]
     Indication: INFLUENZA
     Dosage: DOSE QUANTITY: 1
     Route: 048
     Dates: start: 20090412
  2. TYLENOL [Concomitant]
     Dosage: DOSE: UNK

REACTIONS (3)
  - MEDICATION RESIDUE [None]
  - OFF LABEL USE [None]
  - SYNCOPE [None]
